FAERS Safety Report 6312522-7 (Version None)
Quarter: 2009Q3

REPORT INFORMATION
  Report Type: 
  Country: None (occurrence: None)
  Receive Date: 20090817
  Receipt Date: 20090805
  Transmission Date: 20100115
  Serious: Yes (Other)
  Sender: FDA-Public Use
  Company Number: JP-PFIZER INC-2009254401

PATIENT
  Age: 75 Year

DRUGS (5)
  1. ZOLOFT [Suspect]
     Indication: DEPRESSION
     Dosage: 25 MG, 1X/DAY
     Route: 048
     Dates: start: 20090715, end: 20090731
  2. SEPAZON [Suspect]
     Indication: ANXIETY
     Dosage: 1 MG, 3X/DAY
     Route: 048
     Dates: end: 20090701
  3. RESLIN [Suspect]
     Indication: DEPRESSION
     Route: 048
     Dates: start: 20090713, end: 20090731
  4. DOGMATYL [Suspect]
     Indication: DEPRESSION
     Dosage: FREQUENCY: 3X/DAY,
     Route: 048
     Dates: start: 20090713, end: 20090731
  5. BENZALIN [Suspect]
     Indication: DEPRESSION
     Route: 048
     Dates: start: 20090715, end: 20090731

REACTIONS (3)
  - DELIRIUM [None]
  - LACUNAR INFARCTION [None]
  - RENAL IMPAIRMENT [None]
